FAERS Safety Report 12389878 (Version 1)
Quarter: 2016Q2

REPORT INFORMATION
  Report Type: Spontaneous
  Country: SG (occurrence: SG)
  Receive Date: 20160520
  Receipt Date: 20160520
  Transmission Date: 20160815
  Serious: Yes (Other)
  Sender: FDA-Public Use
  Company Number: SG-BAYER-2016-096863

PATIENT
  Age: 45 Year
  Sex: Female

DRUGS (1)
  1. CIPROFLOXACIN. [Suspect]
     Active Substance: CIPROFLOXACIN
     Dosage: UNK

REACTIONS (2)
  - Lymphoedema [Unknown]
  - Local swelling [Unknown]

NARRATIVE: CASE EVENT DATE: 20160201
